FAERS Safety Report 14013137 (Version 2)
Quarter: 2017Q4

REPORT INFORMATION
  Report Type: Spontaneous
  Country: US (occurrence: US)
  Receive Date: 20170926
  Receipt Date: 20171025
  Transmission Date: 20180321
  Serious: Yes (Hospitalization, Other)
  Sender: FDA-Public Use
  Company Number: US-ALLERGAN-1752997US

PATIENT
  Age: 3 Year
  Sex: Female

DRUGS (1)
  1. CARIPRAZINE HCL - BP [Suspect]
     Active Substance: CARIPRAZINE
     Indication: PRODUCT USED FOR UNKNOWN INDICATION
     Dosage: FIVE, 3 MG PILLS
     Route: 065

REACTIONS (13)
  - Accidental overdose [Unknown]
  - Abdominal pain [Recovered/Resolved]
  - Lethargy [Recovered/Resolved]
  - Unresponsive to stimuli [Recovered/Resolved]
  - Thrombocytopenia [Recovered/Resolved]
  - Tremor [Recovered/Resolved]
  - Depressed level of consciousness [Recovered/Resolved]
  - Poisoning [Recovered/Resolved]
  - Drooling [Recovered/Resolved]
  - Dysphagia [Recovered/Resolved]
  - Product use issue [Unknown]
  - Muscular weakness [Recovered/Resolved]
  - Agitation [Recovered/Resolved]
